FAERS Safety Report 5205715-3 (Version None)
Quarter: 2007Q1

REPORT INFORMATION
  Report Type: 
  Country: None (occurrence: None)
  Receive Date: 20070111
  Receipt Date: 20070103
  Transmission Date: 20070707
  Serious: Yes (Hospitalization)
  Sender: FDA-Public Use
  Company Number: IT-ABBOTT-06P-083-0347695-00

PATIENT
  Sex: Female
  Weight: 67 kg

DRUGS (15)
  1. KALETRA [Suspect]
     Indication: HIV INFECTION
     Route: 048
     Dates: start: 20051110
  2. VALSARTAN [Concomitant]
     Indication: HYPERTENSION
     Route: 048
     Dates: start: 20050101
  3. ATENOLOL [Concomitant]
     Indication: HYPERTENSION
     Dates: start: 20050101, end: 20051227
  4. FUROSEMIDE [Concomitant]
     Indication: HYPERTENSION
     Dates: start: 20050101, end: 20051227
  5. FUROSEMIDE [Concomitant]
     Indication: CARDIAC FAILURE CONGESTIVE
  6. CANRENOIC ACID [Concomitant]
     Indication: HYPERTENSION
     Dates: start: 20050101, end: 20051227
  7. CANRENOIC ACID [Concomitant]
     Indication: CARDIAC FAILURE CONGESTIVE
  8. RAMIPRIL [Concomitant]
     Indication: HYPERTENSION
     Dates: start: 20050101
  9. RAMIPRIL [Concomitant]
     Indication: CARDIAC FAILURE CONGESTIVE
  10. OSYROL-LASIX [Concomitant]
     Indication: HYPERTENSION
     Dates: start: 20051227
  11. OSYROL-LASIX [Concomitant]
     Indication: CARDIAC FAILURE CONGESTIVE
  12. DARILIN [Concomitant]
     Indication: CYTOMEGALOVIRUS INFECTION
     Route: 048
     Dates: start: 20051014, end: 20060529
  13. BACTRIM [Concomitant]
     Indication: PROPHYLAXIS
     Route: 048
     Dates: start: 20051014
  14. VIREAD [Concomitant]
     Indication: HIV INFECTION
  15. LAMIVUDINE [Concomitant]
     Indication: HIV INFECTION

REACTIONS (2)
  - BRONCHOPNEUMONIA [None]
  - SINUSITIS [None]
